FAERS Safety Report 15207637 (Version 1)
Quarter: 2018Q3

REPORT INFORMATION
  Report Type: Spontaneous
  Country: CH (occurrence: CH)
  Receive Date: 20180727
  Receipt Date: 20180727
  Transmission Date: 20181010
  Serious: Yes (Other)
  Sender: FDA-Public Use
  Company Number: CH-MERCK KGAA-2052817

PATIENT
  Age: 64 Year
  Sex: Female

DRUGS (1)
  1. NOVOTHYROX [Suspect]
     Active Substance: LEVOTHYROXINE SODIUM
     Indication: AUTOIMMUNE THYROIDITIS
     Dates: start: 201806, end: 2018

REACTIONS (9)
  - Myalgia [Not Recovered/Not Resolved]
  - Angina pectoris [None]
  - Thyroxine free decreased [None]
  - Amnesia [Recovering/Resolving]
  - Tri-iodothyronine free decreased [None]
  - Alopecia [Recovering/Resolving]
  - Fatigue [Recovering/Resolving]
  - Arrhythmia [None]
  - Blood thyroid stimulating hormone increased [None]

NARRATIVE: CASE EVENT DATE: 2018
